FAERS Safety Report 5411903-3 (Version None)
Quarter: 2007Q3

REPORT INFORMATION
  Report Type: 
  Country: None (occurrence: None)
  Receive Date: 20070813
  Receipt Date: 20070802
  Transmission Date: 20080115
  Serious: Yes (Other)
  Sender: FDA-Public Use
  Company Number: US-JNJFOC-20070800967

PATIENT
  Age: 42 Year
  Sex: Female
  Weight: 62.6 kg

DRUGS (4)
  1. ULTRAM [Suspect]
     Indication: BACK PAIN
     Route: 048
  2. ULTRAM [Suspect]
     Indication: SCOLIOSIS
     Route: 048
  3. LORTAB [Concomitant]
     Indication: PAIN
     Dosage: EVERY OTHER DAY
     Route: 048
  4. COREG [Concomitant]
     Indication: HYPERTENSION
     Route: 048

REACTIONS (3)
  - ANALGESIC DRUG LEVEL ABOVE THERAPEUTIC [None]
  - PAIN [None]
  - WEIGHT INCREASED [None]
